FAERS Safety Report 8671600 (Version 2)
Quarter: 2013Q1

REPORT INFORMATION
  Report Type: Report from Study
  Country: US (occurrence: US)
  Receive Date: 20120718
  Receipt Date: 20130125
  Transmission Date: 20140127
  Serious: Yes (Other)
  Sender: FDA-Public Use
  Company Number: US-ABBOTT-12P-163-0954609-00

PATIENT
  Sex: Female
  Weight: 75.36 kg

DRUGS (9)
  1. HUMIRA 40 MG/0.8 ML PEN [Suspect]
     Indication: RHEUMATOID ARTHRITIS
     Dosage: PATIENT TAKES EVERY 7 TO 9 DAYS
     Dates: start: 20110405, end: 20120210
  2. HUMIRA 40 MG/0.8 ML PEN [Suspect]
     Dosage: PATIENT TAKES EVERY 7 TO 9 DAYS
     Dates: start: 2012, end: 20120301
  3. VICODIN [Concomitant]
     Indication: PAIN
     Dosage: UP TO FOUR TIMES DAILY
     Route: 048
  4. AMLODIPINE [Concomitant]
     Indication: HYPERTENSION
     Route: 048
  5. BENAZEPRIL [Concomitant]
     Indication: HYPERTENSION
     Route: 048
  6. PILOCARPINE [Concomitant]
     Indication: DRY MOUTH
     Route: 048
  7. ESTRADIOL [Concomitant]
     Indication: OESTROGEN REPLACEMENT THERAPY
  8. XANAX [Concomitant]
     Indication: INSOMNIA
  9. ELAVIL [Concomitant]
     Indication: NERVOUSNESS
     Dosage: AT BEDTIME
     Route: 048

REACTIONS (7)
  - Dental caries [Unknown]
  - Tooth infection [Recovered/Resolved]
  - Joint swelling [Recovered/Resolved]
  - Local swelling [Recovered/Resolved]
  - Inappropriate schedule of drug administration [Not Recovered/Not Resolved]
  - Rheumatoid arthritis [Not Recovered/Not Resolved]
  - Local swelling [Not Recovered/Not Resolved]
